FAERS Safety Report 4830238-0 (Version None)
Quarter: 2005Q4

REPORT INFORMATION
  Report Type: 
  Country: None (occurrence: None)
  Receive Date: 20051117
  Receipt Date: 20051013
  Transmission Date: 20060501
  Serious: Yes (Hospitalization, Other)
  Sender: FDA-Public Use
  Company Number: US-GLAXOSMITHKLINE-A0578328A

PATIENT
  Age: 54 Year
  Sex: Male
  Weight: 69.5 kg

DRUGS (19)
  1. FLONASE [Suspect]
     Indication: DRUG USE FOR UNKNOWN INDICATION
     Dosage: 2SPR PER DAY
     Route: 045
     Dates: start: 20050405, end: 20050922
  2. COLACE [Concomitant]
     Dosage: 100MG TWICE PER DAY
  3. ACIPHEX [Concomitant]
     Dosage: 20MG PER DAY
  4. BACTRIM DS [Concomitant]
  5. LEUCOVORIN [Concomitant]
     Dosage: 5MG PER DAY
  6. CYCLOSPORINE [Concomitant]
     Dosage: 50MG TWICE PER DAY
  7. VFEND [Concomitant]
     Dosage: 200MG TWICE PER DAY
  8. VALTREX [Concomitant]
     Dosage: 1G THREE TIMES PER DAY
  9. COREG [Concomitant]
     Dosage: 12.5MG TWICE PER DAY
  10. ISORDIL [Concomitant]
     Indication: HYPERTENSION
     Dosage: 20MG THREE TIMES PER DAY
  11. PHOSLO [Concomitant]
     Route: 048
  12. POTASSIUM CHLORIDE [Concomitant]
     Dosage: 20MEQ TWICE PER DAY
  13. QVAR [Concomitant]
     Indication: CHRONIC OBSTRUCTIVE PULMONARY DISEASE
     Dosage: 1PUFF PER DAY
  14. COMBIVENT [Concomitant]
     Indication: CHRONIC OBSTRUCTIVE PULMONARY DISEASE
  15. HYDROCHLOROTHIAZIDE [Concomitant]
     Indication: HYPERTENSION
     Dosage: 50MG PER DAY
  16. HYDRALAZINE [Concomitant]
     Indication: HYPERTENSION
     Dosage: 50MG PER DAY
  17. PREDNISOLONE [Concomitant]
     Dosage: 7.5MG PER DAY
  18. LOPRESSOR [Concomitant]
     Indication: HYPERTENSION
     Dosage: 12.5MG TWICE PER DAY
  19. LEXAPRO [Concomitant]
     Indication: DEPRESSION
     Dosage: 10MG PER DAY

REACTIONS (1)
  - ORTHOSTATIC HYPOTENSION [None]
